FAERS Safety Report 10884087 (Version 1)
Quarter: 2015Q1

REPORT INFORMATION
  Report Type: Spontaneous
  Country: US (occurrence: None)
  Receive Date: 20150226
  Receipt Date: 20150226
  Transmission Date: 20150721
  Serious: Yes (Hospitalization)
  Sender: FDA-Public Use
  Company Number: None

PATIENT
  Age: 59 Year
  Sex: Female
  Weight: 61.69 kg

DRUGS (2)
  1. SUNITINIB [Suspect]
     Active Substance: SUNITINIB
     Indication: BREAST CANCER METASTATIC
     Dosage: 1 CAP
     Route: 048
     Dates: start: 20150115, end: 20150212
  2. CRIZOTINIB [Suspect]
     Active Substance: CRIZOTINIB
     Indication: BREAST CANCER METASTATIC
     Dosage: 2  CAPS
     Route: 048
     Dates: start: 20150115, end: 20150212

REACTIONS (1)
  - Metastases to lung [None]

NARRATIVE: CASE EVENT DATE: 20150210
